FAERS Safety Report 15637611 (Version 1)
Quarter: 2018Q4

REPORT INFORMATION
  Report Type: Spontaneous
  Country: US (occurrence: US)
  Receive Date: 20181120
  Receipt Date: 20181120
  Transmission Date: 20190205
  Serious: No
  Sender: FDA-Public Use
  Company Number: US-JNJFOC-20180524748

PATIENT
  Sex: Female
  Weight: 54 kg

DRUGS (9)
  1. DOXYCYCLINE. [Suspect]
     Active Substance: DOXYCYCLINE
     Indication: ARTHROPOD BITE
     Dates: start: 2018, end: 2018
  2. POTASSIUM [Concomitant]
     Active Substance: POTASSIUM
  3. FUROSEMIDE. [Concomitant]
     Active Substance: FUROSEMIDE
  4. ALLOPURINOL. [Concomitant]
     Active Substance: ALLOPURINOL
  5. IMBRUVICA [Suspect]
     Active Substance: IBRUTINIB
     Indication: PRODUCT USED FOR UNKNOWN INDICATION
     Route: 048
     Dates: start: 2018
  6. ASPIRIN. [Concomitant]
     Active Substance: ASPIRIN
  7. NIACIN. [Concomitant]
     Active Substance: NIACIN
  8. METOPROLOL. [Concomitant]
     Active Substance: METOPROLOL
  9. MULTIVITAMINS [Concomitant]
     Active Substance: VITAMINS

REACTIONS (4)
  - Incorrect dose administered [Unknown]
  - Erythema [Unknown]
  - Off label use [Unknown]
  - Arthropod bite [Unknown]

NARRATIVE: CASE EVENT DATE: 2018
